FAERS Safety Report 11246851 (Version 1)
Quarter: 2015Q3

REPORT INFORMATION
  Report Type: Spontaneous
  Country: US (occurrence: US)
  Receive Date: 20150708
  Receipt Date: 20150708
  Transmission Date: 20151125
  Serious: No
  Sender: FDA-Public Use
  Company Number: US-BIOGENIDEC-2015BI091742

PATIENT
  Sex: Female

DRUGS (5)
  1. ESTRADIOL. [Concomitant]
     Active Substance: ESTRADIOL
     Indication: HORMONE REPLACEMENT THERAPY
  2. PIROXICAM. [Concomitant]
     Active Substance: PIROXICAM
     Indication: OSTEOARTHRITIS
  3. CLONAZEPAM. [Concomitant]
     Active Substance: CLONAZEPAM
     Indication: INSOMNIA
  4. AVONEX [Suspect]
     Active Substance: INTERFERON BETA-1A
     Indication: MULTIPLE SCLEROSIS
     Route: 030
  5. AVONEX [Suspect]
     Active Substance: INTERFERON BETA-1A
     Indication: MULTIPLE SCLEROSIS
     Route: 030
     Dates: start: 200411, end: 200501

REACTIONS (9)
  - Pain [Unknown]
  - Feeling hot [Unknown]
  - Pyrexia [Unknown]
  - Drug interaction [Unknown]
  - Headache [Unknown]
  - Liver tenderness [Unknown]
  - Abdominal distension [Unknown]
  - Agitation [Unknown]
  - Neck pain [Unknown]

NARRATIVE: CASE EVENT DATE: 200411
